FAERS Safety Report 17630395 (Version 1)
Quarter: 2020Q2

REPORT INFORMATION
  Report Type: Spontaneous
  Country: US (occurrence: US)
  Receive Date: 20200406
  Receipt Date: 20200406
  Transmission Date: 20200713
  Serious: No
  Sender: FDA-Public Use
  Company Number: US-EISAI MEDICAL RESEARCH-EC-2020-072092

PATIENT
  Age: 76 Year
  Sex: Female

DRUGS (1)
  1. ARICEPT [Suspect]
     Active Substance: DONEPEZIL HYDROCHLORIDE
     Indication: APHASIA
     Dosage: DOSE AND FREQUENCY UNKNOWN
     Route: 048
     Dates: start: 201803

REACTIONS (4)
  - Asthenia [Unknown]
  - Fall [Unknown]
  - Dysstasia [Unknown]
  - Upper limb fracture [Unknown]

NARRATIVE: CASE EVENT DATE: 2018
